FAERS Safety Report 7316247-0 (Version None)
Quarter: 2011Q1

REPORT INFORMATION
  Report Type: 
  Country: None (occurrence: None)
  Receive Date: 20110225
  Receipt Date: 20110222
  Transmission Date: 20110831
  Serious: Yes (Other)
  Sender: FDA-Public Use
  Company Number: GR-PFIZER INC-2011037969

PATIENT
  Sex: Female

DRUGS (4)
  1. MEDROL [Suspect]
     Dosage: 6 MG, 1X/DAY
     Route: 048
  2. BETAHISTINE HYDROCHLORIDE [Suspect]
     Indication: DIZZINESS
     Dosage: 16 MG, 3X/DAY
  3. CAPTOPRIL AND HYDROCHLOROTHIAZIDE [Suspect]
     Indication: DIZZINESS
  4. MEDROL [Suspect]
     Indication: TEMPORAL ARTERITIS
     Dosage: 48 MG, 1X/DAY
     Route: 048

REACTIONS (5)
  - ANXIETY [None]
  - DIZZINESS [None]
  - INFLUENZA [None]
  - SYNCOPE [None]
  - DRUG INEFFECTIVE FOR UNAPPROVED INDICATION [None]
